FAERS Safety Report 9807593 (Version 1)
Quarter: 2014Q1

REPORT INFORMATION
  Report Type: Spontaneous
  Country: US (occurrence: US)
  Receive Date: 20140110
  Receipt Date: 20140110
  Transmission Date: 20141002
  Serious: No
  Sender: FDA-Public Use
  Company Number: US-SANOFI-AVENTIS-2013SA048053

PATIENT
  Age: 47 Year
  Sex: Female

DRUGS (6)
  1. PLAVIX [Suspect]
     Indication: STENT PLACEMENT
  2. KEPPRA [Concomitant]
  3. TEGRETOL [Concomitant]
  4. ATIVAN [Concomitant]
  5. METOPROLOL [Concomitant]
  6. SEROQUEL [Concomitant]

REACTIONS (3)
  - Fall [Unknown]
  - Head injury [Unknown]
  - Pain [Unknown]
